FAERS Safety Report 16758509 (Version 1)
Quarter: 2019Q3

REPORT INFORMATION
  Report Type: Report from Study
  Country: ES (occurrence: ES)
  Receive Date: 20190830
  Receipt Date: 20190830
  Transmission Date: 20191005
  Serious: Yes (Life-Threatening, Hospitalization)
  Sender: FDA-Public Use
  Company Number: ES-TEVA-2019-ES-1098847

PATIENT
  Age: 68 Year
  Sex: Male

DRUGS (6)
  1. BOI-K [ASPARTIC ACID\POTASSIUM ASCORBATE] [Interacting]
     Active Substance: ASPARTIC ACID\POTASSIUM ASCORBATE
     Dosage: 2 GRAM, 1 DAY; 20 TABLETS
     Route: 048
     Dates: start: 20141215, end: 20180624
  2. FUROSEMIDA (1615A) [Interacting]
     Active Substance: FUROSEMIDE
     Indication: CARDIAC FAILURE
     Dosage: 40 MILLIGRAM, 1 DAY
     Route: 048
     Dates: start: 20090629
  3. DOXAZOSINA (2387A) [Interacting]
     Active Substance: DOXAZOSIN MESYLATE
     Indication: BENIGN PROSTATIC HYPERPLASIA
     Dosage: 4 MILLIGRAM, 1 DAY
     Route: 048
     Dates: start: 20100414
  4. ENALAPRIL MALEATO (2142MA) [Suspect]
     Active Substance: ENALAPRIL MALEATE
     Indication: HYPERTENSION
     Dosage: 10 MILLIGRAM, 1 DAY
     Route: 048
     Dates: start: 20180417, end: 20180624
  5. GABAPENTINA (2641A) [Concomitant]
     Active Substance: GABAPENTIN
     Dosage: 1.2 MG, 1 DAY
     Route: 048
     Dates: start: 20170830, end: 20180624
  6. FLUOXETINA (2331A) [Concomitant]
     Active Substance: FLUOXETINE HYDROCHLORIDE
     Indication: DEPRESSION
     Dosage: 20 MG,1 DAY
     Route: 048
     Dates: start: 20130902, end: 20180624

REACTIONS (3)
  - Acute kidney injury [Recovered/Resolved]
  - Drug interaction [Unknown]
  - Hyperkalaemia [Recovered/Resolved]

NARRATIVE: CASE EVENT DATE: 20180617
